FAERS Safety Report 6848018-3 (Version None)
Quarter: 2010Q3

REPORT INFORMATION
  Report Type: 
  Country: None (occurrence: None)
  Receive Date: 20100716
  Receipt Date: 20100705
  Transmission Date: 20110219
  Serious: Yes (Other)
  Sender: FDA-Public Use
  Company Number: NL-PFIZER INC-2010083403

PATIENT
  Age: 68 Year
  Sex: Male

DRUGS (2)
  1. CHAMPIX [Suspect]
     Indication: SMOKING CESSATION THERAPY
  2. NICOTINELL [Suspect]
     Indication: SMOKING CESSATION THERAPY
     Route: 062

REACTIONS (10)
  - ABDOMINAL DISCOMFORT [None]
  - ABNORMAL BEHAVIOUR [None]
  - AGITATION [None]
  - ARRHYTHMIA [None]
  - DEPRESSION [None]
  - DYSPNOEA [None]
  - ERUCTATION [None]
  - HYPERHIDROSIS [None]
  - HYPERTENSION [None]
  - PALPITATIONS [None]
